FAERS Safety Report 7888313-2 (Version None)
Quarter: 2011Q4

REPORT INFORMATION
  Report Type: 
  Country: None (occurrence: None)
  Receive Date: 20111103
  Receipt Date: 20111021
  Transmission Date: 20120403
  Serious: Yes (Hospitalization)
  Sender: FDA-Public Use
  Company Number: US-BAYER-201024043NA

PATIENT
  Age: 22 Year
  Sex: Female
  Weight: 68.027 kg

DRUGS (9)
  1. YASMIN [Suspect]
     Indication: ACNE
     Dosage: UNK
     Route: 048
     Dates: start: 20080116, end: 20080903
  2. VITAMIN TAB [Concomitant]
  3. IBUPROFEN (ADVIL) [Concomitant]
     Indication: HEADACHE
  4. YAZ [Suspect]
     Indication: ACNE
     Dosage: UNK
     Route: 048
     Dates: start: 20080116, end: 20080903
  5. PHENOBARBITAL TAB [Concomitant]
     Indication: CONVULSION
     Dosage: UNK
     Dates: start: 20030401
  6. DOXYCYCLINE HYCLATE [Concomitant]
     Dosage: 100 MG, UNK
     Route: 048
     Dates: start: 20080510
  7. YAZ [Suspect]
     Dosage: UNK
     Route: 048
     Dates: start: 20061216, end: 20070305
  8. FLUCONAZOLE [Concomitant]
     Dosage: 150 MG, UNK
     Route: 048
     Dates: start: 20080116
  9. NAPROXEN [Concomitant]
     Indication: HEADACHE

REACTIONS (6)
  - PAIN [None]
  - INJURY [None]
  - BACK PAIN [None]
  - MUSCULOSKELETAL STIFFNESS [None]
  - DEEP VEIN THROMBOSIS [None]
  - OEDEMA PERIPHERAL [None]
